FAERS Safety Report 5374833-1 (Version None)
Quarter: 2007Q2

REPORT INFORMATION
  Report Type: 
  Country: None (occurrence: None)
  Receive Date: 20070629
  Receipt Date: 20070622
  Transmission Date: 20071010
  Serious: Yes (Death)
  Sender: FDA-Public Use
  Company Number: B0425814A

PATIENT
  Age: 26 Year
  Sex: Male
  Weight: 62 kg

DRUGS (3)
  1. FLOLAN [Suspect]
     Indication: PORTAL HYPERTENSION
     Route: 042
     Dates: start: 20041117
  2. WARFARIN POTASSIUM [Suspect]
     Route: 048
  3. NIFEDIPINE [Concomitant]
     Route: 048

REACTIONS (3)
  - CARDIO-RESPIRATORY ARREST [None]
  - HAEMATEMESIS [None]
  - PULMONARY HAEMORRHAGE [None]
